FAERS Safety Report 25820594 (Version 2)
Quarter: 2025Q4

REPORT INFORMATION
  Report Type: Report from Study
  Country: CO (occurrence: CO)
  Receive Date: 20250919
  Receipt Date: 20251112
  Transmission Date: 20260117
  Serious: Yes (Hospitalization, Other)
  Sender: JOHNSON AND JOHNSON
  Company Number: CO-JNJFOC-20250632157

PATIENT
  Age: 54 Year
  Sex: Female
  Weight: 57 kg

DRUGS (1)
  1. SIMPONI [Suspect]
     Active Substance: GOLIMUMAB
     Indication: Rheumatoid arthritis
     Dosage: LAST ADMINISTRATION: 15-JUL-2025
     Route: 058
     Dates: start: 202002

REACTIONS (4)
  - Illness [Not Recovered/Not Resolved]
  - Breast operation [Unknown]
  - Bacterial infection [Unknown]
  - Impaired healing [Not Recovered/Not Resolved]

NARRATIVE: CASE EVENT DATE: 20250620
